FAERS Safety Report 6019821-7 (Version None)
Quarter: 2008Q4

REPORT INFORMATION
  Report Type: 
  Country: None (occurrence: None)
  Receive Date: 20081224
  Receipt Date: 20081222
  Transmission Date: 20090506
  Serious: Yes (Hospitalization)
  Sender: FDA-Public Use
  Company Number: GB-B.I. PHARMACEUTICALS,INC./RIDGEFIELD-2008-UK-01892UK

PATIENT
  Age: 83 Year
  Sex: Male
  Weight: 78.3 kg

DRUGS (7)
  1. DIPYRIDAMOLE [Suspect]
     Indication: ISCHAEMIC STROKE
     Dosage: 200MG
     Route: 048
     Dates: start: 20081028, end: 20081105
  2. ASPIRIN [Suspect]
     Indication: ISCHAEMIC STROKE
     Dosage: 75MG
     Route: 048
     Dates: start: 20081024, end: 20081105
  3. AMLODIPINE [Concomitant]
     Indication: HYPERTENSION
     Dosage: 10MG
     Route: 048
  4. BENDROFLUMETHIAZIDE [Concomitant]
     Indication: HYPERTENSION
     Dosage: 2.5MG
     Route: 048
  5. BISOPROLOL FUMARATE [Concomitant]
     Indication: HYPERTENSION
     Dosage: 5MG
     Route: 048
  6. OMEPRAZOLE [Concomitant]
     Indication: PROPHYLAXIS
     Dosage: 20MG
     Route: 048
     Dates: start: 20081024
  7. PANTOPRAZOLE [Concomitant]
     Dosage: 20MG
     Route: 048
     Dates: end: 20081024

REACTIONS (2)
  - GASTROINTESTINAL ULCER HAEMORRHAGE [None]
  - MELAENA [None]
